FAERS Safety Report 25345456 (Version 1)
Quarter: 2025Q2

REPORT INFORMATION
  Report Type: Other
  Country: IN (occurrence: None)
  Receive Date: 20250522
  Receipt Date: 20250522
  Transmission Date: 20250716
  Serious: Yes (Other)
  Sender: AET PHARMA
  Company Number: IN-AET-000017

PATIENT
  Age: 46 Year
  Sex: Male

DRUGS (2)
  1. LEFLUNOMIDE [Suspect]
     Active Substance: LEFLUNOMIDE
     Indication: Product used for unknown indication
     Dosage: 10 MG DAILY FOR OVER FOUR YEARS
  2. METHOTREXATE [Suspect]
     Active Substance: METHOTREXATE
     Indication: Product used for unknown indication
     Dosage: 15 MG ONCE WEEKLY

REACTIONS (2)
  - Pneumothorax [Unknown]
  - Disease recurrence [Unknown]
